FAERS Safety Report 15732521 (Version 7)
Quarter: 2021Q1

REPORT INFORMATION
  Report Type: Spontaneous
  Country: US (occurrence: US)
  Receive Date: 20181217
  Receipt Date: 20210224
  Transmission Date: 20210419
  Serious: Yes (Hospitalization, Other)
  Sender: FDA-Public Use
  Company Number: US-VIFOR (INTERNATIONAL) INC.-VIT-2018-12259

PATIENT
  Age: 72 Year
  Sex: Male

DRUGS (23)
  1. NITROGLYCERIN. [Concomitant]
     Active Substance: NITROGLYCERIN
  2. ZANTAC [Concomitant]
     Active Substance: RANITIDINE HYDROCHLORIDE
  3. SYNTHROID [Concomitant]
     Active Substance: LEVOTHYROXINE SODIUM
     Indication: THYROID DISORDER
  4. VELTASSA [Suspect]
     Active Substance: PATIROMER
     Indication: HYPERKALAEMIA
     Route: 048
     Dates: start: 20160617
  5. B6 [Concomitant]
     Active Substance: PYRIDOXINE HYDROCHLORIDE
  6. ELIQUIS [Concomitant]
     Active Substance: APIXABAN
  7. NITRO?DUR [Concomitant]
     Active Substance: NITROGLYCERIN
  8. VELTASSA [Suspect]
     Active Substance: PATIROMER
  9. METANX [Concomitant]
     Active Substance: LEVOMEFOLATE CALCIUM\METHYLCOBALAMIN\PYRIDOXAL PHOSPHATE ANHYDROUS
  10. STARLIX [Concomitant]
     Active Substance: NATEGLINIDE
  11. EPIPEN [Concomitant]
     Active Substance: EPINEPHRINE
  12. IMURAN [Concomitant]
     Active Substance: AZATHIOPRINE
  13. LOVAZA [Concomitant]
     Active Substance: OMEGA-3-ACID ETHYL ESTERS
  14. VELTASSA [Suspect]
     Active Substance: PATIROMER
     Dosage: DOSE INCREASED
     Dates: start: 20190519
  15. DIOVAN [Concomitant]
     Active Substance: VALSARTAN
  16. LIPITOR [Concomitant]
     Active Substance: ATORVASTATIN CALCIUM
  17. VASOTEC [Concomitant]
     Active Substance: ENALAPRIL MALEATE
  18. BETAPACE [Concomitant]
     Active Substance: SOTALOL HYDROCHLORIDE
  19. TORSEMIDE. [Concomitant]
     Active Substance: TORSEMIDE
  20. KEPPRA [Concomitant]
     Active Substance: LEVETIRACETAM
  21. MYFORTIC [Concomitant]
     Active Substance: MYCOPHENOLATE SODIUM
  22. PREDNISONE. [Concomitant]
     Active Substance: PREDNISONE
  23. TRADJENTA [Concomitant]
     Active Substance: LINAGLIPTIN

REACTIONS (11)
  - Blood potassium increased [Unknown]
  - Blood potassium abnormal [Unknown]
  - Drug ineffective [Unknown]
  - Asthenia [Unknown]
  - Malaise [Unknown]
  - Cerebrovascular accident [Unknown]
  - Seizure [Unknown]
  - Aortic valve replacement [Unknown]
  - Dizziness [Recovered/Resolved]
  - Product taste abnormal [Unknown]
  - Off label use [Unknown]

NARRATIVE: CASE EVENT DATE: 201811
